FAERS Safety Report 23407751 (Version 1)
Quarter: 2024Q1

REPORT INFORMATION
  Report Type: Spontaneous
  Country: US (occurrence: US)
  Receive Date: 20240117
  Receipt Date: 20240117
  Transmission Date: 20240410
  Serious: No
  Sender: FDA-Public Use
  Company Number: US-TERSERA THERAPEUTICS LLC-2023TRS001679

PATIENT

DRUGS (1)
  1. PRIALT [Suspect]
     Active Substance: ZICONOTIDE ACETATE
     Indication: Complex regional pain syndrome
     Dosage: UNK
     Route: 037

REACTIONS (5)
  - Pain [Unknown]
  - Heart rate increased [Unknown]
  - Respiratory rate increased [Unknown]
  - Depression [Unknown]
  - Anxiety [Unknown]
